FAERS Safety Report 7533033-7 (Version None)
Quarter: 2011Q2

REPORT INFORMATION
  Report Type: 
  Country: None (occurrence: None)
  Receive Date: 20110608
  Receipt Date: 20110527
  Transmission Date: 20111010
  Serious: Yes (Hospitalization)
  Sender: FDA-Public Use
  Company Number: US-AMGEN-USASP2011027974

PATIENT
  Age: 49 Year
  Sex: Male

DRUGS (1)
  1. ENBREL [Suspect]
     Indication: RHEUMATOID ARTHRITIS
     Dosage: 25 MG, QWK
     Dates: start: 20090905, end: 20100601

REACTIONS (5)
  - LACERATION [None]
  - NASOPHARYNGITIS [None]
  - EPICONDYLITIS [None]
  - RHEUMATOID ARTHRITIS [None]
  - SKELETAL INJURY [None]
